FAERS Safety Report 8160396-4 (Version None)
Quarter: 2012Q1

REPORT INFORMATION
  Report Type: 
  Country: None (occurrence: None)
  Receive Date: 20120223
  Receipt Date: 20120220
  Transmission Date: 20120608
  Serious: Yes (Hospitalization, Other)
  Sender: FDA-Public Use
  Company Number: FR-PFIZER INC-2012044163

PATIENT
  Age: 52 Year
  Sex: Female

DRUGS (7)
  1. MORPHINE SULFATE [Suspect]
     Indication: MUSCULOSKELETAL PAIN
     Dosage: 3 DF, DAILY
     Route: 048
     Dates: start: 20111010
  2. ZIAGEN [Concomitant]
     Indication: ACQUIRED IMMUNODEFICIENCY SYNDROME
     Dosage: UNK
     Dates: start: 20030715
  3. ISENTRESS [Concomitant]
     Indication: ACQUIRED IMMUNODEFICIENCY SYNDROME
     Dosage: UNK
     Dates: start: 20100401
  4. NEURONTIN [Suspect]
     Indication: MUSCULOSKELETAL PAIN
     Dosage: 600 MG, 3X/DAY
     Route: 048
     Dates: start: 20110801
  5. NEURONTIN [Suspect]
     Dosage: 1200 MG, 3X/DAY
     Route: 048
     Dates: start: 20111010
  6. MORPHINE SULFATE [Suspect]
     Indication: MUSCULOSKELETAL PAIN
     Dosage: 240 MG, DAILY
     Route: 048
     Dates: start: 20111010, end: 20111106
  7. NORVIR [Concomitant]
     Indication: ACQUIRED IMMUNODEFICIENCY SYNDROME
     Dosage: UNK
     Dates: start: 20040401

REACTIONS (7)
  - COLITIS [None]
  - FUNCTIONAL GASTROINTESTINAL DISORDER [None]
  - DYSPNOEA [None]
  - PYREXIA [None]
  - ABDOMINAL PAIN [None]
  - CONSTIPATION [None]
  - DIARRHOEA [None]
